FAERS Safety Report 9659636 (Version 1)
Quarter: 2013Q4

REPORT INFORMATION
  Report Type: Report from Study
  Country: CA (occurrence: CA)
  Receive Date: 20131031
  Receipt Date: 20131031
  Transmission Date: 20140711
  Serious: Yes (Hospitalization)
  Sender: FDA-Public Use
  Company Number: CA-JNJFOC-20131016137

PATIENT
  Age: 17 Year
  Sex: Male
  Weight: 53 kg

DRUGS (5)
  1. REMICADE [Suspect]
     Indication: CROHN^S DISEASE
     Dosage: RECEIVED ON WEEK 0, 2, 6
     Route: 042
     Dates: start: 20131002
  2. CIPROFLOXACIN [Concomitant]
     Route: 048
     Dates: end: 20131012
  3. METHOTREXATE [Concomitant]
     Route: 048
  4. LEVAQUIN [Concomitant]
     Route: 048
     Dates: start: 20131012
  5. METRONIDAZOLE [Concomitant]
     Route: 065
     Dates: start: 20131012

REACTIONS (3)
  - Intestinal resection [Unknown]
  - Abscess intestinal [Unknown]
  - Pyrexia [Recovered/Resolved]
